FAERS Safety Report 4643888-1 (Version None)
Quarter: 2005Q2

REPORT INFORMATION
  Report Type: 
  Country: None (occurrence: None)
  Receive Date: 20050421
  Receipt Date: 20050411
  Transmission Date: 20051028
  Serious: Yes (Hospitalization, Other)
  Sender: FDA-Public Use
  Company Number: CHPA2003US02250

PATIENT
  Age: 47 Year
  Sex: Female
  Weight: 78 kg

DRUGS (13)
  1. EX-LAX LAXATIVE UNKNOWN FORMULA (NCH) [Suspect]
     Dates: start: 19930101
  2. CORRECTOL [Suspect]
     Dates: start: 19930101
  3. IBUPROFEN [Concomitant]
  4. PREVPAC (AMOXICILLIN TRIHYDRATE, CLARITHROMYCIN, LANSOPRAZOLE) [Concomitant]
  5. FLEET ENEMA (SODIUM PHOSPHATE, SODIUM PHOSPHATE DIBASIC) [Concomitant]
  6. FLEXERIL [Concomitant]
  7. VIOXX [Concomitant]
  8. DARVOCET (DEXTROPROPOXYPHENE NAPSILATE, PARACETAMOL) [Concomitant]
  9. DAYPRO [Concomitant]
  10. MONOPRIL [Concomitant]
  11. DARVON [Concomitant]
  12. GOLYTELY (MACROGOL, POTASSIUM CHLORIDE, SODIUM BICARBONATE, SODIUM CHL [Concomitant]
  13. DEMADEX [Concomitant]

REACTIONS (18)
  - ABDOMINAL DISTENSION [None]
  - ABDOMINAL PAIN [None]
  - ABDOMINAL PAIN UPPER [None]
  - BLOOD PRESSURE INCREASED [None]
  - CONSTIPATION [None]
  - DRUG DEPENDENCE [None]
  - ECONOMIC PROBLEM [None]
  - EMOTIONAL DISORDER [None]
  - ENDOMETRIOSIS [None]
  - ILEUS [None]
  - INTESTINAL HAEMORRHAGE [None]
  - INTESTINAL OBSTRUCTION [None]
  - NAUSEA [None]
  - OVARIAN CYST [None]
  - PELVIC PAIN [None]
  - PHYSICAL DISABILITY [None]
  - RECTAL HAEMORRHAGE [None]
  - VOMITING [None]
